FAERS Safety Report 7977107-5 (Version None)
Quarter: 2011Q4

REPORT INFORMATION
  Report Type: 
  Country: None (occurrence: None)
  Receive Date: 20111213
  Receipt Date: 20111112
  Transmission Date: 20120403
  Serious: No
  Sender: FDA-Public Use
  Company Number: US-AMGEN-USASP2011059519

PATIENT
  Sex: Female

DRUGS (2)
  1. METHOTREXATE [Concomitant]
  2. ENBREL [Suspect]
     Indication: PRODUCT USED FOR UNKNOWN INDICATION
     Dosage: UNK UNK, QWK
     Dates: start: 20111001

REACTIONS (7)
  - MALAISE [None]
  - GASTROENTERITIS [None]
  - HEADACHE [None]
  - HYPERSOMNIA [None]
  - VOMITING [None]
  - PHOTOPHOBIA [None]
  - ASTHENOPIA [None]
